FAERS Safety Report 6905048-0 (Version None)
Quarter: 2010Q3

REPORT INFORMATION
  Report Type: 
  Country: None (occurrence: None)
  Receive Date: 20100804
  Receipt Date: 20090828
  Transmission Date: 20110219
  Serious: No
  Sender: FDA-Public Use
  Company Number: US-PFIZER INC-2009235869

PATIENT
  Sex: Male
  Weight: 99.773 kg

DRUGS (11)
  1. LYRICA [Suspect]
     Indication: BACK PAIN
     Dosage: UNK
     Dates: start: 20090101, end: 20090101
  2. LYRICA [Suspect]
     Indication: PAIN IN EXTREMITY
  3. BENICAR [Concomitant]
     Dosage: UNK
  4. TRAZODONE [Concomitant]
     Dosage: UNK
  5. GLYBURIDE [Concomitant]
     Dosage: UNK
  6. ACTOS [Concomitant]
     Dosage: UNK
  7. DETROL LA [Concomitant]
     Dosage: UNK
  8. LORTAB [Concomitant]
     Dosage: UNK
  9. MS CONTIN [Concomitant]
     Dosage: UNK
  10. METOPROLOL [Concomitant]
     Dosage: UNK
  11. NEXIUM [Concomitant]
     Dosage: UNK

REACTIONS (1)
  - PAIN IN EXTREMITY [None]
